FAERS Safety Report 4863483-9 (Version None)
Quarter: 2005Q4

REPORT INFORMATION
  Report Type: 
  Country: None (occurrence: None)
  Receive Date: 20051222
  Receipt Date: 20050225
  Transmission Date: 20060501
  Serious: No
  Sender: FDA-Public Use
  Company Number: US-GLAXOSMITHKLINE-A0547357A

PATIENT
  Sex: Female

DRUGS (5)
  1. FLONASE [Suspect]
     Dosage: 4SPR PER DAY
     Route: 045
     Dates: start: 20010201
  2. DIOVAN [Concomitant]
  3. CELEBREX [Concomitant]
  4. CADUET [Concomitant]
  5. REMERON [Concomitant]

REACTIONS (1)
  - ANOSMIA [None]
